FAERS Safety Report 5749513-0 (Version None)
Quarter: 2008Q2

REPORT INFORMATION
  Report Type: 
  Country: None (occurrence: None)
  Receive Date: 20080527
  Receipt Date: 20080520
  Transmission Date: 20081010
  Serious: Yes (Other)
  Sender: FDA-Public Use
  Company Number: B0521523A

PATIENT
  Age: 58 Year
  Sex: Female

DRUGS (1)
  1. MALARONE [Suspect]
     Indication: MALARIA PROPHYLAXIS
     Dosage: 250MG PER DAY
     Route: 048
     Dates: start: 20080430, end: 20080502

REACTIONS (10)
  - ASTHENOPIA [None]
  - EYE DISORDER [None]
  - EYE SWELLING [None]
  - GASTRIC DISORDER [None]
  - HEADACHE [None]
  - OCULAR VASCULAR DISORDER [None]
  - PHOTOSENSITIVITY REACTION [None]
  - UVEITIS [None]
  - VISUAL ACUITY REDUCED [None]
  - VISUAL DISTURBANCE [None]
